FAERS Safety Report 4952443-5 (Version None)
Quarter: 2006Q1

REPORT INFORMATION
  Report Type: 
  Country: None (occurrence: None)
  Receive Date: 20060323
  Receipt Date: 20060313
  Transmission Date: 20060701
  Serious: Yes (Hospitalization)
  Sender: FDA-Public Use
  Company Number: BE-BRISTOL-MYERS SQUIBB COMPANY-13312459

PATIENT
  Age: 56 Year
  Sex: Female

DRUGS (2)
  1. ARIPIPRAZOLE [Suspect]
     Indication: DELUSION
     Route: 048
  2. ARIPIPRAZOLE [Suspect]
     Indication: HALLUCINATION, AUDITORY
     Route: 048

REACTIONS (1)
  - HYPERTENSIVE CRISIS [None]
